FAERS Safety Report 12617668 (Version 1)
Quarter: 2016Q3

REPORT INFORMATION
  Report Type: Spontaneous
  Country: US (occurrence: US)
  Receive Date: 20160803
  Receipt Date: 20160803
  Transmission Date: 20161109
  Serious: No
  Sender: FDA-Public Use
  Company Number: US-009507513-1607USA004442

PATIENT
  Age: 16 Year
  Sex: Male

DRUGS (2)
  1. DULERA [Suspect]
     Active Substance: FORMOTEROL FUMARATE DIHYDRATE\MOMETASONE FUROATE
     Indication: ASTHMA
     Dosage: LAST SUMMER, ORAL INHALER
     Route: 055
     Dates: start: 2015, end: 201604
  2. XOPENEX [Concomitant]
     Active Substance: LEVALBUTEROL HYDROCHLORIDE
     Indication: ASTHMA

REACTIONS (7)
  - Muscle tightness [Unknown]
  - Hypertension [Unknown]
  - Feeling of body temperature change [Unknown]
  - Fatigue [Unknown]
  - Anxiety [Unknown]
  - Vomiting [Unknown]
  - Vitamin B12 deficiency [Unknown]

NARRATIVE: CASE EVENT DATE: 201511
